FAERS Safety Report 21651414 (Version 2)
Quarter: 2023Q1

REPORT INFORMATION
  Report Type: Spontaneous
  Country: US (occurrence: US)
  Receive Date: 20221128
  Receipt Date: 20230220
  Transmission Date: 20230417
  Serious: Yes (Death, Other)
  Sender: FDA-Public Use
  Company Number: US-ELI_LILLY_AND_COMPANY-US202211010780

PATIENT
  Sex: Male

DRUGS (3)
  1. ZYPREXA RELPREVV [Suspect]
     Active Substance: OLANZAPINE PAMOATE
     Indication: Product used for unknown indication
     Dosage: 405 MG, UNKNOWN
     Route: 065
  2. ZYPREXA RELPREVV [Suspect]
     Active Substance: OLANZAPINE PAMOATE
     Indication: Product used for unknown indication
     Dosage: 405 MG, UNKNOWN
     Route: 065
  3. ZYPREXA RELPREVV [Suspect]
     Active Substance: OLANZAPINE PAMOATE
     Indication: Product used for unknown indication
     Dosage: 405 MG, UNKNOWN
     Route: 065

REACTIONS (2)
  - Death [Fatal]
  - Malignant neoplasm progression [Not Recovered/Not Resolved]
